FAERS Safety Report 10920484 (Version 1)
Quarter: 2015Q1

REPORT INFORMATION
  Report Type: Spontaneous
  Country: US (occurrence: None)
  Receive Date: 20150313
  Receipt Date: 20150313
  Transmission Date: 20150721
  Serious: No
  Sender: FDA-Public Use
  Company Number: None

PATIENT
  Age: 75 Year
  Sex: Female
  Weight: 57.61 kg

DRUGS (7)
  1. KERYDIN [Suspect]
     Active Substance: TAVABOROLE
     Indication: FUNGAL INFECTION
     Dosage: 4 ML, 1-2 DROPS, 1X, SKIN
     Dates: start: 20141216, end: 201501
  2. VITAMIN D [Concomitant]
     Active Substance: CHOLECALCIFEROL
  3. ARNICARE [Concomitant]
     Active Substance: ARNICA MONTANA
  4. DIOVAN HCT [Concomitant]
     Active Substance: HYDROCHLOROTHIAZIDE\VALSARTAN
  5. LEVOXYL [Concomitant]
     Active Substance: LEVOTHYROXINE SODIUM
  6. BIOTIN [Concomitant]
     Active Substance: BIOTIN
  7. METOPROLOL [Concomitant]
     Active Substance: METOPROLOL

REACTIONS (11)
  - Erythema [None]
  - No therapeutic response [None]
  - Blister [None]
  - Local swelling [None]
  - Ulcer [None]
  - Secretion discharge [None]
  - Skin discolouration [None]
  - Pain in extremity [None]
  - Pyrexia [None]
  - Gait disturbance [None]
  - Diarrhoea [None]

NARRATIVE: CASE EVENT DATE: 201502
